FAERS Safety Report 6709409-4 (Version None)
Quarter: 2010Q2

REPORT INFORMATION
  Report Type: 
  Country: None (occurrence: None)
  Receive Date: 20100504
  Receipt Date: 20100430
  Transmission Date: 20101027
  Serious: Yes (Death, Hospitalization, Other)
  Sender: FDA-Public Use
  Company Number: PHHY2009FR14573

PATIENT
  Sex: Male
  Weight: 88.2 kg

DRUGS (5)
  1. ERL 080A ERL+TAB [Suspect]
     Indication: RENAL TRANSPLANT
     Dosage: 1440 MG/DAY
     Route: 048
     Dates: start: 20080424
  2. ERL 080A ERL+TAB [Suspect]
     Dosage: 180 MG/DAY
     Dates: start: 20080424
  3. NEORAL [Suspect]
     Indication: RENAL TRANSPLANT
     Dosage: 180 MG/DAY
     Route: 048
     Dates: start: 20080424, end: 20081108
  4. CORTICOSTEROID NOS [Concomitant]
     Indication: IMMUNOSUPPRESSION
     Dosage: UNK
     Route: 048
     Dates: start: 20080424
  5. RAPAMUNE [Concomitant]
     Dosage: UNK
     Dates: start: 20081108

REACTIONS (7)
  - ANAEMIA [None]
  - HEPATIC LESION [None]
  - HEPATIC NEOPLASM [None]
  - LUNG NEOPLASM [None]
  - METASTASES TO LIVER [None]
  - METASTATIC BRONCHIAL CARCINOMA [None]
  - THROMBOCYTOPENIA [None]
